FAERS Safety Report 17441026 (Version 1)
Quarter: 2020Q1

REPORT INFORMATION
  Report Type: Spontaneous
  Country: US (occurrence: US)
  Receive Date: 20200220
  Receipt Date: 20200220
  Transmission Date: 20200409
  Serious: No
  Sender: FDA-Public Use
  Company Number: US-SHIRE-US202006398

PATIENT
  Age: 28 Year
  Sex: Female

DRUGS (1)
  1. TAKHZYRO [Suspect]
     Active Substance: LANADELUMAB-FLYO
     Indication: HEREDITARY ANGIOEDEMA
     Dosage: UNK, EVERY 4 WEEKS
     Route: 058
     Dates: start: 20190110

REACTIONS (1)
  - Hereditary angioedema [Recovered/Resolved]
